FAERS Safety Report 24986337 (Version 1)
Quarter: 2025Q1

REPORT INFORMATION
  Report Type: Spontaneous
  Country: US (occurrence: None)
  Receive Date: 20250218
  Receipt Date: 20250218
  Transmission Date: 20250409
  Serious: Yes (Other)
  Sender: FDA-CTU
  Company Number: None

PATIENT
  Age: 61 Year
  Sex: Male
  Weight: 110.25 kg

DRUGS (1)
  1. TRESIBA [Suspect]
     Active Substance: INSULIN DEGLUDEC
     Indication: Type 2 diabetes mellitus
     Dates: start: 20230324, end: 20250215

REACTIONS (8)
  - Pain in extremity [None]
  - Pain in extremity [None]
  - Neuropathy peripheral [None]
  - Pain in extremity [None]
  - Ligament disorder [None]
  - Fracture [None]
  - Pain in extremity [None]
  - Infection [None]

NARRATIVE: CASE EVENT DATE: 20250101
